FAERS Safety Report 6921328-7 (Version None)
Quarter: 2010Q3

REPORT INFORMATION
  Report Type: 
  Country: None (occurrence: None)
  Receive Date: 20100812
  Receipt Date: 20100811
  Transmission Date: 20110219
  Serious: Yes (Other)
  Sender: FDA-Public Use
  Company Number: D0068578A

PATIENT
  Sex: Male

DRUGS (1)
  1. VIANI MITE [Suspect]
     Route: 065
     Dates: start: 20100501

REACTIONS (2)
  - ATRIAL FIBRILLATION [None]
  - PHARYNGEAL DISORDER [None]
